FAERS Safety Report 4874890-2 (Version None)
Quarter: 2006Q1

REPORT INFORMATION
  Report Type: 
  Country: None (occurrence: None)
  Receive Date: 20060105
  Receipt Date: 20051228
  Transmission Date: 20060701
  Serious: Yes (Other)
  Sender: FDA-Public Use
  Company Number: US-2005-028016

PATIENT
  Age: 24 Year
  Sex: Female
  Weight: 81.6 kg

DRUGS (5)
  1. YASMIN [Suspect]
     Indication: ACNE
     Dosage: 1 TAB(S), 1X/DAY, ORAL
     Route: 048
     Dates: start: 20041101
  2. PRILOSEC [Concomitant]
  3. REGLAN                       /USA/ [Concomitant]
  4. METOCLOPRAMIDE HYDROCHLORIDE [Concomitant]
  5. ALBUTEROL [Concomitant]

REACTIONS (2)
  - BREAST ENGORGEMENT [None]
  - FIBROADENOMA OF BREAST [None]
